FAERS Safety Report 24658106 (Version 3)
Quarter: 2025Q2

REPORT INFORMATION
  Report Type: Spontaneous
  Country: US (occurrence: US)
  Receive Date: 20241125
  Receipt Date: 20250402
  Transmission Date: 20250716
  Serious: Yes (Hospitalization, Other)
  Sender: BRISTOL MYERS SQUIBB
  Company Number: US-EXELIXIS-EXL-2024-002404

PATIENT
  Age: 71 Year
  Sex: Male

DRUGS (3)
  1. OPDIVO [Suspect]
     Active Substance: NIVOLUMAB
     Indication: Renal cancer
  2. CABOMETYX [Suspect]
     Active Substance: CABOZANTINIB S-MALATE
     Indication: Renal cancer
     Route: 048
  3. TIVOZANIB [Suspect]
     Active Substance: TIVOZANIB
     Indication: Renal cancer

REACTIONS (4)
  - Hypothyroidism [Unknown]
  - Ageusia [Unknown]
  - Gastrointestinal disorder [Recovering/Resolving]
  - Localised infection [Unknown]
